FAERS Safety Report 9841378 (Version 1)
Quarter: 2014Q1

REPORT INFORMATION
  Report Type: Spontaneous
  Country: US (occurrence: US)
  Receive Date: 20140124
  Receipt Date: 20140124
  Transmission Date: 20141002
  Serious: Yes (Hospitalization)
  Sender: FDA-Public Use
  Company Number: US-BAYER-2014-010202

PATIENT
  Sex: Male

DRUGS (1)
  1. ALEVE CAPLET [Suspect]

REACTIONS (1)
  - Blister [None]
